FAERS Safety Report 4370477-9 (Version None)
Quarter: 2004Q2

REPORT INFORMATION
  Report Type: 
  Country: None (occurrence: None)
  Receive Date: 20040525
  Receipt Date: 20040512
  Transmission Date: 20050107
  Serious: Yes (Hospitalization)
  Sender: FDA-Public Use
  Company Number: K200400707

PATIENT
  Age: 88 Year
  Sex: Female

DRUGS (7)
  1. ALTACE [Suspect]
     Indication: HYPERTENSION
     Dosage: 5 MG, QD, ORAL
     Route: 048
     Dates: end: 20030305
  2. ASS (ACETYLSALICYLIC ACID) 100MG [Suspect]
     Indication: CORONARY ARTERY DISEASE
     Dosage: 100 MG, QD, ORAL
     Route: 048
  3. ISOSORBIDE MONONITRATE [Suspect]
     Indication: CORONARY ARTERY DISEASE
     Dosage: 40 MG, QD, ORAL
     Route: 048
  4. CORVATARD(MOLSIDOMINE) TABLET, 8MG [Suspect]
     Indication: CORONARY ARTERY DISEASE
     Dosage: 8 MG, QD, ORAL
     Route: 048
  5. NEBIVOLOL HCL [Suspect]
     Indication: HYPERTENSION
     Dosage: 2.5 MG QD, ORAL
     Route: 048
  6. TOREM (TORASEMIDE) TABLET, 5 MG [Suspect]
     Indication: CARDIAC FAILURE
     Dosage: 5 MG, QD,ORAL
     Route: 048
  7. INSULIN ACTRAPHANE (INSULIN HUMAN INJECTION, ISOPHANE) [Concomitant]

REACTIONS (13)
  - ARTERIOSCLEROSIS [None]
  - BLOOD CREATININE INCREASED [None]
  - BLOOD SODIUM DECREASED [None]
  - CALCINOSIS [None]
  - CEREBELLAR INFARCTION [None]
  - CEREBRAL ATROPHY [None]
  - CLAVICLE FRACTURE [None]
  - COMA [None]
  - DRUG INTERACTION [None]
  - ENCEPHALOPATHY [None]
  - HYPOTENSION [None]
  - INTERNATIONAL NORMALISED RATIO DECREASED [None]
  - SYNCOPE [None]
